FAERS Safety Report 7620313-X (Version None)
Quarter: 2011Q3

REPORT INFORMATION
  Report Type: 
  Country: None (occurrence: None)
  Receive Date: 20110719
  Receipt Date: 20110712
  Transmission Date: 20111222
  Serious: Yes (Hospitalization)
  Sender: FDA-Public Use
  Company Number: SE-JNJFOC-20110704493

PATIENT
  Sex: Female

DRUGS (5)
  1. TOPAMAX [Suspect]
     Indication: EPILEPSY
     Route: 048
  2. CITALOPRAM HYDROBROMIDE [Suspect]
     Indication: PRODUCT USED FOR UNKNOWN INDICATION
     Route: 065
  3. ESIDRIX [Suspect]
     Indication: OEDEMA PERIPHERAL
     Route: 065
  4. METFORMIN HCL [Suspect]
     Indication: DIABETES MELLITUS
     Route: 065
  5. VALPROATE SODIUM [Suspect]
     Indication: PRODUCT USED FOR UNKNOWN INDICATION
     Route: 065

REACTIONS (4)
  - HYPOCHLORAEMIA [None]
  - HYPONATRAEMIA [None]
  - ALKALOSIS [None]
  - HYPOKALAEMIA [None]
